FAERS Safety Report 13433641 (Version 1)
Quarter: 2017Q2

REPORT INFORMATION
  Report Type: Spontaneous
  Country: IN (occurrence: IN)
  Receive Date: 20170412
  Receipt Date: 20170412
  Transmission Date: 20170830
  Serious: Yes (Other)
  Sender: FDA-Public Use
  Company Number: IN-MYLANLABS-2017M1022064

PATIENT

DRUGS (10)
  1. ZIDOVUDINE. [Suspect]
     Active Substance: ZIDOVUDINE
     Indication: HIV INFECTION
     Dosage: FIRST LINE HIGHLY ACTIVE ANTIRETROVIRAL THERAPY
     Route: 065
     Dates: start: 2011
  2. TRIMETHOPRIM. [Concomitant]
     Active Substance: TRIMETHOPRIM
     Indication: PRODUCT USED FOR UNKNOWN INDICATION
     Route: 065
     Dates: start: 2011
  3. COTRIMOXAZOLE [Concomitant]
     Active Substance: SULFAMETHOXAZOLE\TRIMETHOPRIM
     Indication: HIV INFECTION
     Route: 065
     Dates: start: 2011
  4. NEVIRAPINE. [Suspect]
     Active Substance: NEVIRAPINE
     Indication: HIV INFECTION
     Dosage: FIRST LINE HIGHLY ACTIVE ANTIRETROVIRAL THERAPY
     Route: 065
     Dates: start: 2011
  5. TENOFOVIR [Suspect]
     Active Substance: TENOFOVIR
     Indication: HIV INFECTION
     Dosage: SECOND LINE HIGHLY ACTIVE ANTIRETROVIRAL THERAPY
     Route: 065
     Dates: start: 201511
  6. RITONAVIR. [Suspect]
     Active Substance: RITONAVIR
     Indication: HIV INFECTION
     Dosage: SECOND LINE HIGHLY ACTIVE ANTIRETROVIRAL THERAPY
     Route: 065
     Dates: start: 201511
  7. LAMIVUDINE. [Suspect]
     Active Substance: LAMIVUDINE
     Dosage: SECOND LINE HIGHLY ACTIVE ANTIRETROVIRAL THERAPY
     Route: 065
     Dates: start: 201511
  8. ATAZANAVIR SULFATE [Suspect]
     Active Substance: ATAZANAVIR SULFATE
     Indication: HIV INFECTION
     Dosage: SECOND LINE HIGHLY ACTIVE ANTIRETROVIRAL THERAPY
     Route: 065
     Dates: start: 201511
  9. LAMIVUDINE. [Suspect]
     Active Substance: LAMIVUDINE
     Indication: HIV INFECTION
     Dosage: FIRST LINE HIGHLY ACTIVE ANTIRETROVIRAL THERAPY
     Route: 065
     Dates: start: 2011
  10. FLUCONAZOLE. [Concomitant]
     Active Substance: FLUCONAZOLE
     Indication: PROPHYLAXIS
     Route: 065
     Dates: start: 2011

REACTIONS (3)
  - Ataxia [Recovering/Resolving]
  - Immune reconstitution inflammatory syndrome [Recovering/Resolving]
  - Opsoclonus myoclonus [Recovering/Resolving]
